FAERS Safety Report 5943816-2 (Version None)
Quarter: 2008Q4

REPORT INFORMATION
  Report Type: 
  Country: None (occurrence: None)
  Receive Date: 20081106
  Receipt Date: 20080905
  Transmission Date: 20090506
  Serious: No
  Sender: FDA-Public Use
  Company Number: US-BAYER-200833094NA

PATIENT
  Age: 62 Year
  Sex: Female
  Weight: 100 kg

DRUGS (6)
  1. ULTRAVIST 370 [Suspect]
     Indication: COMPUTERISED TOMOGRAM ABDOMEN
     Dosage: TOTAL DAILY DOSE: 120 ML  UNIT DOSE: 500 ML
     Route: 042
     Dates: start: 20080905, end: 20080905
  2. NORVASC [Concomitant]
  3. DETROL [Concomitant]
  4. PROVASTIN [Concomitant]
  5. ULTRAVIST (PHARMACY BULK) [Concomitant]
     Indication: COMPUTERISED TOMOGRAM ABDOMEN
     Route: 048
     Dates: start: 20080905, end: 20080905
  6. ACTOPLUS MET [Concomitant]

REACTIONS (2)
  - PRURITUS [None]
  - URTICARIA [None]
